FAERS Safety Report 21939460 (Version 1)
Quarter: 2023Q1

REPORT INFORMATION
  Report Type: Report from Study
  Country: US (occurrence: US)
  Receive Date: 20230201
  Receipt Date: 20230201
  Transmission Date: 20230417
  Serious: No
  Sender: FDA-Public Use
  Company Number: US-EXELIXIS-CABO-21047212

PATIENT
  Age: 68 Year
  Sex: Male
  Weight: 58.141 kg

DRUGS (11)
  1. CABOMETYX [Suspect]
     Active Substance: CABOZANTINIB S-MALATE
     Indication: Metastatic renal cell carcinoma
     Dosage: 40 MG, QD
     Route: 048
     Dates: start: 20210922, end: 20220209
  2. CABOMETYX [Suspect]
     Active Substance: CABOZANTINIB S-MALATE
     Indication: Metastases to kidney
     Dosage: 20 MG, QD
     Route: 048
     Dates: start: 20220309
  3. NIVOLUMAB [Suspect]
     Active Substance: NIVOLUMAB
     Indication: Metastatic renal cell carcinoma
     Dosage: UNK, Q4WEEKS
     Dates: start: 20210922
  4. NIVOLUMAB [Suspect]
     Active Substance: NIVOLUMAB
     Indication: Metastases to kidney
  5. IMODIUM [Suspect]
     Active Substance: LOPERAMIDE HYDROCHLORIDE
     Indication: Diarrhoea
     Dosage: UNK
  6. COMPAZINE [Concomitant]
     Active Substance: PROCHLORPERAZINE MALEATE
  7. ZOFRAN [Concomitant]
     Active Substance: ONDANSETRON HYDROCHLORIDE
  8. VITAMIN D3 [Concomitant]
     Active Substance: CHOLECALCIFEROL
  9. CALCIUM CITRATE [Concomitant]
     Active Substance: CALCIUM CITRATE
  10. AMLODIPINE [Concomitant]
     Active Substance: AMLODIPINE BESYLATE
     Dosage: UNK
  11. METOPROLOL [Concomitant]
     Active Substance: METOPROLOL
     Dosage: UNK

REACTIONS (19)
  - Adverse drug reaction [Unknown]
  - Gastrooesophageal reflux disease [Unknown]
  - Temperature intolerance [Unknown]
  - Back pain [Unknown]
  - Tobacco abuse [Unknown]
  - Confusional state [Unknown]
  - Hypertension [Recovering/Resolving]
  - Vena cava thrombosis [Unknown]
  - Thrombocytopenia [Unknown]
  - Decreased appetite [Recovering/Resolving]
  - Dysgeusia [Unknown]
  - Dehydration [Unknown]
  - Fatigue [Unknown]
  - Muscle spasms [Unknown]
  - Diarrhoea [Unknown]
  - Dry skin [Unknown]
  - Chest discomfort [Unknown]
  - Dyspepsia [Unknown]
  - Metastases to chest wall [Unknown]

NARRATIVE: CASE EVENT DATE: 20220228
